FAERS Safety Report 5727899-0 (Version None)
Quarter: 2008Q2

REPORT INFORMATION
  Report Type: 
  Country: None (occurrence: None)
  Receive Date: 20080505
  Receipt Date: 20080423
  Transmission Date: 20081010
  Serious: Yes (Death)
  Sender: FDA-Public Use
  Company Number: US-PFIZER INC-2008035643

PATIENT
  Age: 24 Year
  Sex: Male

DRUGS (3)
  1. XANAX [Suspect]
     Indication: STRESS
     Route: 048
     Dates: start: 20030124, end: 20050805
  2. CARISOPRODOL [Interacting]
     Indication: MUSCLE SPASMS
     Route: 048
     Dates: start: 20030124, end: 20050805
  3. HYDROCODONE BITARTRATE + ACETAMINOPHEN [Interacting]
     Indication: PAIN
     Route: 048
     Dates: start: 20030124, end: 20050805

REACTIONS (3)
  - DRUG INTERACTION [None]
  - DRUG TOXICITY [None]
  - INTENTIONAL OVERDOSE [None]
